FAERS Safety Report 5925272-3 (Version None)
Quarter: 2008Q3

REPORT INFORMATION
  Report Type: 
  Country: None (occurrence: None)
  Receive Date: 20080909
  Receipt Date: 20071226
  Transmission Date: 20090109
  Serious: Yes (Hospitalization)
  Sender: FDA-Public Use
  Company Number: 163-20785-07090433

PATIENT
  Age: 48 Year
  Sex: Male

DRUGS (2)
  1. THALOMID [Suspect]
     Indication: MULTIPLE MYELOMA
     Dosage: 200 MG, 1 IN 1 D, ORAL
     Route: 048
     Dates: start: 20070720, end: 20070909
  2. WARFARIN SODIUM [Concomitant]

REACTIONS (1)
  - DEEP VEIN THROMBOSIS [None]
